FAERS Safety Report 22585565 (Version 2)
Quarter: 2024Q1

REPORT INFORMATION
  Report Type: Report from Study
  Country: US (occurrence: US)
  Receive Date: 20230610
  Receipt Date: 20240321
  Transmission Date: 20240409
  Serious: Yes (Other)
  Sender: FDA-Public Use
  Company Number: US-002147023-NVSC2023US132348

PATIENT
  Sex: Female

DRUGS (1)
  1. ENTRESTO [Suspect]
     Active Substance: SACUBITRIL\VALSARTAN
     Indication: Product used for unknown indication
     Dosage: 1 DOSAGE FORM, BID (49/51 MG)
     Route: 048
     Dates: start: 202305

REACTIONS (7)
  - Myocardial infarction [Unknown]
  - Blindness [Unknown]
  - Influenza [Unknown]
  - Speech disorder [Unknown]
  - Amnesia [Unknown]
  - Aphasia [Unknown]
  - Gait disturbance [Unknown]
